FAERS Safety Report 21784931 (Version 1)
Quarter: 2022Q4

REPORT INFORMATION
  Report Type: Spontaneous
  Country: US (occurrence: None)
  Receive Date: 20221223
  Receipt Date: 20221223
  Transmission Date: 20230113
  Serious: No
  Sender: FDA-Public Use
  Company Number: None

PATIENT
  Age: 96 Year
  Sex: Female
  Weight: 51.8 kg

DRUGS (2)
  1. KEYTRUDA [Suspect]
     Active Substance: PEMBROLIZUMAB
     Indication: Malignant melanoma
     Dosage: OTHER FREQUENCY : Q6WEEKS;?OTHER ROUTE : IV;?
     Route: 050
  2. TRAMADOL [Concomitant]
     Active Substance: TRAMADOL

REACTIONS (1)
  - Hospice care [None]
